FAERS Safety Report 4881153-8 (Version None)
Quarter: 2005Q4

REPORT INFORMATION
  Report Type: 
  Country: None (occurrence: None)
  Receive Date: 20051223
  Receipt Date: 20050906
  Transmission Date: 20060501
  Serious: No
  Sender: FDA-Public Use
  Company Number: 05P-163-0310412-00

PATIENT
  Age: 51 Year
  Sex: Female
  Weight: 54.4316 kg

DRUGS (7)
  1. HUMIRA [Suspect]
     Indication: CROHN'S DISEASE
     Dosage: 80 MG, 1 IN 2 WK, SUBCUTANEOUS;  40 MG, 1 IN 2 WK, SUBCUTANEOUS
     Route: 058
     Dates: start: 20050410, end: 20050701
  2. HUMIRA [Suspect]
     Indication: CROHN'S DISEASE
     Dosage: 80 MG, 1 IN 2 WK, SUBCUTANEOUS;  40 MG, 1 IN 2 WK, SUBCUTANEOUS
     Route: 058
     Dates: start: 20050801
  3. ESTROGENS [Concomitant]
  4. PROGESTERONE [Concomitant]
  5. RISEDRONATE SODIUM [Concomitant]
  6. IMITREX [Concomitant]
  7. FIOROCET [Concomitant]

REACTIONS (2)
  - INJECTION SITE URTICARIA [None]
  - NASOPHARYNGITIS [None]
